FAERS Safety Report 5408424-0 (Version None)
Quarter: 2007Q3

REPORT INFORMATION
  Report Type: 
  Country: None (occurrence: None)
  Receive Date: 20070808
  Receipt Date: 20070730
  Transmission Date: 20080115
  Serious: Yes (Hospitalization)
  Sender: FDA-Public Use
  Company Number: US-TYCO HEALTHCARE/MALLINCKRODT-T200700799

PATIENT

DRUGS (5)
  1. ACETAMINOPHEN AND HYDROCODONE BITARTRATE [Suspect]
     Indication: NECK PAIN
     Dosage: 1 TAB Q4H
     Route: 048
     Dates: start: 20070101, end: 20070301
  2. MOTRIN [Concomitant]
     Indication: PAIN
     Dosage: 800 MG, PRN
     Route: 048
  3. VICODIN [Concomitant]
     Indication: PAIN
     Dosage: 1/2 TAB PRN
     Route: 048
  4. CELEXA [Concomitant]
     Indication: DEPRESSION
     Route: 048
  5. LORAZEPAM [Concomitant]
     Indication: ANXIETY
     Route: 048

REACTIONS (5)
  - CONSTIPATION [None]
  - DRUG INEFFECTIVE [None]
  - HALLUCINATION [None]
  - MALIGNANT MELANOMA [None]
  - PARANOIA [None]
